FAERS Safety Report 8840400 (Version 1)
Quarter: 2012Q4

REPORT INFORMATION
  Report Type: 
  Country: US (occurrence: US)
  Receive Date: 20121015
  Receipt Date: 20121015
  Transmission Date: 20130627
  Serious: Yes (Hospitalization)
  Sender: FDA-Public Use
  Company Number: US-ROCHE-1132825

PATIENT
  Sex: Male
  Weight: 74.7 kg

DRUGS (2)
  1. NUTROPIN [Suspect]
     Indication: RHEUMATOID ARTHRITIS
     Route: 058
     Dates: start: 199812
  2. PREDNISONE [Concomitant]
     Route: 065

REACTIONS (3)
  - Viral infection [Unknown]
  - Vomiting [Unknown]
  - Adrenal insufficiency [Unknown]
